FAERS Safety Report 12305000 (Version 1)
Quarter: 2016Q2

REPORT INFORMATION
  Report Type: Spontaneous
  Country: IT (occurrence: IT)
  Receive Date: 20160426
  Receipt Date: 20160426
  Transmission Date: 20160815
  Serious: Yes (Death)
  Sender: FDA-Public Use
  Company Number: IT-ROCHE-1747172

PATIENT
  Age: 80 Year
  Sex: Male

DRUGS (5)
  1. SELEPARINA [Suspect]
     Active Substance: NADROPARIN CALCIUM
     Indication: PROPHYLAXIS
     Route: 058
     Dates: start: 20160326, end: 20160328
  2. HUMALOG [Concomitant]
     Active Substance: INSULIN LISPRO
     Indication: PRODUCT USED FOR UNKNOWN INDICATION
     Route: 058
     Dates: start: 20160407, end: 20160414
  3. ACTILYSE [Suspect]
     Active Substance: ALTEPLASE
     Indication: ISCHAEMIC STROKE
     Route: 042
     Dates: start: 20160326
  4. ARIXTRA [Suspect]
     Active Substance: FONDAPARINUX SODIUM
     Indication: PROPHYLAXIS
     Route: 058
     Dates: start: 20160405, end: 20160411
  5. LEVOXACIN [Concomitant]
     Active Substance: LEVOFLOXACIN
     Indication: PNEUMONIA
     Route: 042
     Dates: start: 20160407, end: 20160414

REACTIONS (2)
  - Thrombocytopenia [Fatal]
  - Cerebral haemorrhage [Fatal]

NARRATIVE: CASE EVENT DATE: 20160407
